FAERS Safety Report 24286600 (Version 1)
Quarter: 2024Q3

REPORT INFORMATION
  Report Type: Spontaneous
  Country: CN (occurrence: CN)
  Receive Date: 20240905
  Receipt Date: 20240905
  Transmission Date: 20241016
  Serious: Yes (Other)
  Sender: PFIZER
  Company Number: CN-PFIZER INC-PV202400115574

PATIENT
  Age: 66 Year
  Sex: Female
  Weight: 57 kg

DRUGS (1)
  1. LINEZOLID [Suspect]
     Active Substance: LINEZOLID
     Indication: Sepsis
     Dosage: 0.6 G, 2X/DAY
     Route: 041
     Dates: start: 20240826, end: 20240828

REACTIONS (1)
  - Dry mouth [Recovering/Resolving]

NARRATIVE: CASE EVENT DATE: 20240827
